FAERS Safety Report 9284482 (Version 3)
Quarter: 2013Q2

REPORT INFORMATION
  Report Type: Spontaneous
  Country: US (occurrence: US)
  Receive Date: 20130510
  Receipt Date: 20130611
  Transmission Date: 20140414
  Serious: Yes (Other)
  Sender: FDA-Public Use
  Company Number: CHPA2013US007727

PATIENT
  Age: 77 Year
  Sex: Female

DRUGS (6)
  1. MAALOX ANTACID/ANTIGAS MAX QDTABS ASST [Suspect]
     Indication: MUSCULOSKELETAL CHEST PAIN
     Dosage: 2 DF, PRN
     Route: 048
  2. MAALOX ANTACID/ANTIGAS MAX QDTABS ASST [Suspect]
     Indication: DYSPEPSIA
  3. MAALOX ANTACID/ANTIGAS MAX QDTABS ASST [Suspect]
     Indication: ABDOMINAL DISTENSION
  4. OXYCODONE [Concomitant]
     Indication: PAIN
     Dosage: UNK, PRN
  5. ANTIHYPERTENSIVE DRUGS [Concomitant]
     Indication: HYPERTENSION
  6. MUSCLE RELAXANTS [Concomitant]

REACTIONS (5)
  - Emphysema [Not Recovered/Not Resolved]
  - Off label use [Unknown]
  - Therapeutic response unexpected [Unknown]
  - Drug ineffective for unapproved indication [Unknown]
  - Drug ineffective [Unknown]
